FAERS Safety Report 6140365-6 (Version None)
Quarter: 2009Q2

REPORT INFORMATION
  Report Type: 
  Country: None (occurrence: None)
  Receive Date: 20090401
  Receipt Date: 20090323
  Transmission Date: 20091009
  Serious: Yes (Other)
  Sender: FDA-Public Use
  Company Number: CA-GILEAD-2009-0020397

PATIENT
  Sex: Male

DRUGS (6)
  1. ATRIPLA [Suspect]
     Indication: HIV INFECTION
     Dates: start: 20080521
  2. HYZAAR [Concomitant]
  3. NORVASC [Concomitant]
  4. LIPITOR [Concomitant]
  5. COLCHICINE [Concomitant]
  6. GLUCOSAMINE [Concomitant]

REACTIONS (1)
  - VIRAL LOAD INCREASED [None]
